FAERS Safety Report 9900684 (Version 1)
Quarter: 2014Q1

REPORT INFORMATION
  Report Type: Spontaneous
  Country: US (occurrence: US)
  Receive Date: 20140217
  Receipt Date: 20140217
  Transmission Date: 20141002
  Serious: Yes (Other)
  Sender: FDA-Public Use
  Company Number: US-BEH-2014040553

PATIENT
  Sex: Female
  Weight: 85 kg

DRUGS (15)
  1. BERINERT [Suspect]
     Indication: HEREDITARY ANGIOEDEMA
     Dosage: AS DIRECTED; SLOW RATE OF 4 ML/MINUTE
     Route: 042
  2. DIPHENHYDRAMINE [Concomitant]
  3. HEPARIN [Concomitant]
  4. SODIUM CHLORIDE [Concomitant]
  5. EPIPEN [Concomitant]
  6. CELEBREX [Concomitant]
  7. NORCO [Concomitant]
  8. STERILE WATER [Concomitant]
  9. CINRYZE [Concomitant]
  10. IMDUR [Concomitant]
  11. TOPROL XL [Concomitant]
  12. TEGRETOL [Concomitant]
  13. TENORMIN [Concomitant]
  14. ZOCOR [Concomitant]
  15. DANAZOL [Concomitant]

REACTIONS (1)
  - Device related infection [Unknown]
